FAERS Safety Report 13088076 (Version 1)
Quarter: 2017Q1

REPORT INFORMATION
  Report Type: Spontaneous
  Country: US (occurrence: US)
  Receive Date: 20170105
  Receipt Date: 20170105
  Transmission Date: 20170428
  Serious: No
  Sender: FDA-Public Use
  Company Number: US-DRREDDYS-USA/USA/16/0082386

PATIENT
  Age: 57 Year
  Sex: Female
  Weight: 92.5 kg

DRUGS (1)
  1. HABITROL [Suspect]
     Active Substance: NICOTINE
     Indication: SMOKING CESSATION THERAPY
     Route: 062
     Dates: start: 20160807, end: 20160809

REACTIONS (3)
  - Application site erythema [Recovered/Resolved]
  - Product adhesion issue [Unknown]
  - Application site pain [Recovered/Resolved]
